FAERS Safety Report 10199282 (Version 2)
Quarter: 2014Q2

REPORT INFORMATION
  Report Type: Spontaneous
  Country: US (occurrence: US)
  Receive Date: 20140527
  Receipt Date: 20140616
  Transmission Date: 20141212
  Serious: No
  Sender: FDA-Public Use
  Company Number: US-BAXTER-2014BAX026171

PATIENT
  Sex: Male
  Weight: 126 kg

DRUGS (8)
  1. DIANEAL LOW CALCIUM [Suspect]
     Indication: RENAL FAILURE CHRONIC
     Dosage: 2 BAGS OF 3L EACH
     Route: 033
  2. DIANEAL LOW CALCIUM [Suspect]
     Dosage: 2 BAGS OF 6L EACH AND 1 BAG OF 3L EACH
     Route: 033
  3. DIANEAL LOW CALCIUM [Suspect]
     Indication: RENAL FAILURE CHRONIC
     Dosage: 2 BAGS OF 3L EACH
     Route: 033
  4. DIANEAL LOW CALCIUM [Suspect]
     Dosage: 2 BAGS OF 6L EACH AND 1 BAG OF 3L EACH
     Route: 033
  5. DIANEAL LOW CALCIUM (ULTRABAG) [Suspect]
     Indication: RENAL FAILURE CHRONIC
     Dosage: 2 BAGS OF 3L EACH
     Route: 033
  6. DIANEAL LOW CALCIUM (ULTRABAG) [Suspect]
     Dosage: 2 BAGS OF 6L EACH AND 1 BAG OF 3L EACH
     Route: 033
  7. DIANEAL LOW CALCIUM (ULTRABAG) [Suspect]
     Indication: RENAL FAILURE CHRONIC
     Dosage: 2 BAGS OF 3L EACH
     Route: 033
  8. DIANEAL LOW CALCIUM (ULTRABAG) [Suspect]
     Dosage: 2 BAGS OF 6L EACH AND 1 BAG OF 3L EACH
     Route: 033

REACTIONS (1)
  - Hypertension [Recovered/Resolved]
